FAERS Safety Report 6688245-1 (Version None)
Quarter: 2010Q2

REPORT INFORMATION
  Report Type: 
  Country: None (occurrence: None)
  Receive Date: 20100420
  Receipt Date: 20100412
  Transmission Date: 20101027
  Serious: Yes (Life-Threatening, Hospitalization)
  Sender: FDA-Public Use
  Company Number: DE-SANOFI-AVENTIS-2010SA021054

PATIENT
  Age: 68 Year
  Sex: Male
  Weight: 130 kg

DRUGS (26)
  1. MULTAQ [Suspect]
     Route: 048
     Dates: start: 20100329, end: 20100329
  2. BISOPROLOL [Concomitant]
     Route: 048
  3. BISOPROLOL [Concomitant]
     Indication: ATRIAL FIBRILLATION
     Route: 048
  4. DIGOXIN [Concomitant]
     Route: 048
     Dates: start: 20100323, end: 20100325
  5. DIGOXIN [Concomitant]
     Indication: ATRIAL FIBRILLATION
     Route: 048
     Dates: start: 20100323, end: 20100325
  6. DIGOXIN [Concomitant]
     Route: 048
     Dates: start: 20100326
  7. DIGOXIN [Concomitant]
     Route: 048
     Dates: start: 20100326
  8. SPIRONOLACTONE [Concomitant]
     Route: 048
     Dates: end: 20100323
  9. SPIRONOLACTONE [Concomitant]
     Dosage: DOSAGE: 1/2-0-0
     Route: 048
     Dates: start: 20100324
  10. SIMVASTATIN [Concomitant]
     Route: 048
  11. RAMIPRIL [Concomitant]
     Route: 048
  12. LASIX [Concomitant]
     Route: 048
  13. FLUOXETINE [Concomitant]
     Indication: DRUG USE FOR UNKNOWN INDICATION
     Route: 048
  14. ACETYLSALICYLIC ACID [Concomitant]
     Route: 048
  15. ENOXAPARIN SODIUM [Concomitant]
     Route: 058
     Dates: start: 20100322
  16. ENOXAPARIN SODIUM [Concomitant]
     Indication: ATRIAL FIBRILLATION
     Route: 058
     Dates: start: 20100322
  17. ENOXAPARIN SODIUM [Concomitant]
     Indication: CARDIOVERSION
     Route: 058
     Dates: start: 20100322
  18. MARCUMAR [Concomitant]
     Dosage: INTAKE OF 3 TABLETS
     Route: 048
     Dates: start: 20100326, end: 20100326
  19. MARCUMAR [Concomitant]
     Indication: ATRIAL FIBRILLATION
     Dosage: INTAKE OF 3 TABLETS
     Route: 048
     Dates: start: 20100326, end: 20100326
  20. MARCUMAR [Concomitant]
     Indication: CARDIOVERSION
     Dosage: INTAKE OF 3 TABLETS
     Route: 048
     Dates: start: 20100326, end: 20100326
  21. MARCUMAR [Concomitant]
     Dosage: INTAKE OF 2 TABLETS
     Route: 048
     Dates: start: 20100327, end: 20100327
  22. MARCUMAR [Concomitant]
     Dosage: INTAKE OF 2 TABLETS
     Route: 048
     Dates: start: 20100327, end: 20100327
  23. MARCUMAR [Concomitant]
     Dosage: INTAKE OF 2 TABLETS
     Route: 048
     Dates: start: 20100327, end: 20100327
  24. MARCUMAR [Concomitant]
     Dosage: INTAKE OF 2 TABLETS
     Route: 048
     Dates: start: 20100328, end: 20100328
  25. MARCUMAR [Concomitant]
     Dosage: INTAKE OF 2 TABLETS
     Route: 048
     Dates: start: 20100328, end: 20100328
  26. MARCUMAR [Concomitant]
     Dosage: INTAKE OF 2 TABLETS
     Route: 048
     Dates: start: 20100328, end: 20100328

REACTIONS (1)
  - VENTRICULAR FIBRILLATION [None]
